FAERS Safety Report 18336395 (Version 1)
Quarter: 2020Q4

REPORT INFORMATION
  Report Type: Report from Study
  Country: US (occurrence: US)
  Receive Date: 20201001
  Receipt Date: 20201001
  Transmission Date: 20210113
  Serious: Yes (Other)
  Sender: FDA-Public Use
  Company Number: US-GLAXOSMITHKLINE-US2020GSK188795

PATIENT
  Age: 8 Year
  Sex: Male

DRUGS (2)
  1. MOMETASONE NASAL SPRAY [Suspect]
     Active Substance: MOMETASONE
     Indication: PRODUCT USED FOR UNKNOWN INDICATION
     Dosage: UNK
  2. BECLOMETHASONE DIPROPIONATE [Suspect]
     Active Substance: BECLOMETHASONE DIPROPIONATE
     Indication: PRODUCT USED FOR UNKNOWN INDICATION
     Dosage: UNK

REACTIONS (4)
  - Adrenal insufficiency [Unknown]
  - Idiopathic intracranial hypertension [Unknown]
  - Papilloedema [Recovered/Resolved]
  - Empty sella syndrome [Unknown]
